FAERS Safety Report 21548786 (Version 5)
Quarter: 2025Q3

REPORT INFORMATION
  Report Type: Spontaneous
  Country: JP (occurrence: JP)
  Receive Date: 20221103
  Receipt Date: 20250809
  Transmission Date: 20251020
  Serious: Yes (Death, Other)
  Sender: ALEXION PHARMACEUTICALS
  Company Number: 2022A363107

PATIENT
  Age: 73 Year
  Sex: Male
  Weight: 70 kg

DRUGS (27)
  1. IMFINZI [Suspect]
     Active Substance: DURVALUMAB
     Indication: Non-small cell lung cancer
     Dosage: 10 MILLIGRAM/KILOGRAM, Q2W
     Dates: start: 20220722, end: 20220921
  2. IMFINZI [Suspect]
     Active Substance: DURVALUMAB
     Dosage: 662 MILLIGRAM, Q2W
     Dates: start: 20220722, end: 20220921
  3. NEXIUM [Concomitant]
     Active Substance: ESOMEPRAZOLE MAGNESIUM
     Indication: Prophylaxis against gastrointestinal ulcer
     Dosage: AFTER BREAKFAST
     Dates: start: 20160619
  4. AMBROXOL HYDROCHLORIDE [Concomitant]
     Active Substance: AMBROXOL HYDROCHLORIDE
     Indication: Airway secretion clearance therapy
     Dosage: AFTER DINNER
  5. AMBROXOL HYDROCHLORIDE [Concomitant]
     Active Substance: AMBROXOL HYDROCHLORIDE
     Dosage: AFTER DINNER
  6. MIYA-BM [Concomitant]
     Active Substance: CLOSTRIDIUM BUTYRICUM SPORES STRAIN M-55
  7. MIYA-BM [Concomitant]
     Active Substance: CLOSTRIDIUM BUTYRICUM SPORES STRAIN M-55
     Dosage: AFTER EVERY MEAL
  8. LEVOCETIRIZINE HYDROCHLORIDE [Concomitant]
     Active Substance: LEVOCETIRIZINE HYDROCHLORIDE
  9. LEVOCETIRIZINE HYDROCHLORIDE [Concomitant]
     Active Substance: LEVOCETIRIZINE HYDROCHLORIDE
  10. PIMOBENDAN [Concomitant]
     Active Substance: PIMOBENDAN
     Indication: Atrial fibrillation
     Dosage: AFTER BREAKFAST AND DINNER
  11. PIMOBENDAN [Concomitant]
     Active Substance: PIMOBENDAN
     Dosage: AFTER BREAKFAST AND DINNER
  12. BISOPROLOL [Concomitant]
     Active Substance: BISOPROLOL
     Indication: Atrial fibrillation
  13. BISOPROLOL [Concomitant]
     Active Substance: BISOPROLOL
     Dosage: AFTER BREAKFAST AND DINNER
  14. Vasolan [Concomitant]
     Indication: Cardiac failure chronic
     Dosage: AFTER EVERY MEAL
  15. Vasolan [Concomitant]
     Dosage: AFTER EVERY MEAL
  16. AZOSEMIDE [Concomitant]
     Active Substance: AZOSEMIDE
     Indication: Cardiac failure chronic
     Dosage: AFTER BREAKFAST
  17. AZOSEMIDE [Concomitant]
     Active Substance: AZOSEMIDE
     Dosage: AFTER BREAKFAST
  18. FEBUXOSTAT [Concomitant]
     Active Substance: FEBUXOSTAT
     Indication: Atrial fibrillation
     Dosage: AFTER BREAKFAST
  19. FEBUXOSTAT [Concomitant]
     Active Substance: FEBUXOSTAT
     Dosage: AFTER BREAKFAST
  20. WARFARIN [Concomitant]
     Active Substance: WARFARIN
  21. WARFARIN [Concomitant]
     Active Substance: WARFARIN
  22. SODIUM FERROUS CITRATE [Concomitant]
     Active Substance: SODIUM FERROUS CITRATE
  23. SODIUM FERROUS CITRATE [Concomitant]
     Active Substance: SODIUM FERROUS CITRATE
  24. PIMOBENDAN [Concomitant]
     Active Substance: PIMOBENDAN
     Indication: Cardiac failure
     Route: 065
  25. PIMOBENDAN [Concomitant]
     Active Substance: PIMOBENDAN
     Indication: Cardiac failure chronic
     Route: 065
  26. BISOPROLOL FUMARATE [Concomitant]
     Active Substance: BISOPROLOL FUMARATE
     Indication: Cardiac failure chronic
     Route: 065
  27. BISOPROLOL FUMARATE [Concomitant]
     Active Substance: BISOPROLOL FUMARATE
     Route: 065

REACTIONS (2)
  - Renal failure [Fatal]
  - Interstitial lung disease [Fatal]

NARRATIVE: CASE EVENT DATE: 20221001
